FAERS Safety Report 8451975 (Version 2)
Quarter: 2012Q4

REPORT INFORMATION
  Report Type: 
  Country: BR (occurrence: BR)
  Receive Date: 20120309
  Receipt Date: 20121018
  Transmission Date: 20130627
  Serious: Yes (Hospitalization)
  Sender: FDA-Public Use
  Company Number: BR-NOVOPROD-346129

PATIENT
  Age: 32 Year
  Sex: Female
  Weight: 66 kg

DRUGS (6)
  1. VICTOZA [Suspect]
     Indication: TYPE 2 DIABETES MELLITUS
     Dosage: 0.6 mg, qd
     Route: 058
     Dates: start: 20110826, end: 20120226
  2. SERTRALINE [Concomitant]
     Indication: ANXIETY
     Dosage: 1 Tab, qd
     Route: 048
     Dates: start: 20020228, end: 20120226
  3. ATENOLOL [Concomitant]
     Indication: HYPERTENSION
     Dosage: 1 tablet / oral
     Dates: start: 20090228
  4. PANTOPRAZOLE [Concomitant]
  5. DULCOLAX                           /00064401/ [Concomitant]
     Indication: CONSTIPATION
  6. MANNITOL [Concomitant]
     Indication: CONSTIPATION

REACTIONS (5)
  - Hiatus hernia [Unknown]
  - Constipation [Unknown]
  - Exposure during pregnancy [Unknown]
  - Malaise [Unknown]
  - Nausea [Unknown]
